FAERS Safety Report 9821868 (Version 2)
Quarter: 2014Q1

REPORT INFORMATION
  Report Type: Spontaneous
  Country: US (occurrence: US)
  Receive Date: 20140116
  Receipt Date: 20140121
  Transmission Date: 20141002
  Serious: Yes (Hospitalization, Other)
  Sender: FDA-Public Use
  Company Number: US-BAXTER-2014BAX001467

PATIENT
  Age: 55 Year
  Sex: Female

DRUGS (4)
  1. DIANEAL LOW CALCIUM [Suspect]
     Indication: RENAL FAILURE CHRONIC
     Route: 033
     Dates: start: 201312, end: 20131225
  2. DIANEAL LOW CALCIUM [Suspect]
     Route: 033
  3. DIANEAL LOW CALCIUM [Suspect]
     Indication: RENAL FAILURE CHRONIC
     Route: 033
     Dates: start: 201312, end: 20131225
  4. DIANEAL LOW CALCIUM [Suspect]
     Route: 033

REACTIONS (3)
  - Heart valve incompetence [Recovered/Resolved]
  - Condition aggravated [Recovered/Resolved]
  - Fluid overload [Recovered/Resolved]
